FAERS Safety Report 6011466-8 (Version None)
Quarter: 2008Q4

REPORT INFORMATION
  Report Type: 
  Country: None (occurrence: None)
  Receive Date: 20081218
  Receipt Date: 20080414
  Transmission Date: 20090506
  Serious: No
  Sender: FDA-Public Use
  Company Number: US-ABBOTT-06P-163-0342873-00

PATIENT
  Sex: Male
  Weight: 123.49 kg

DRUGS (5)
  1. MERIDIA [Suspect]
     Indication: WEIGHT CONTROL
     Route: 048
     Dates: start: 20060701
  2. MERIDIA [Suspect]
     Route: 048
     Dates: start: 20061101, end: 20070301
  3. MERIDIA [Suspect]
     Route: 048
     Dates: start: 20080201
  4. LEVOTHYROXINE SODIUM [Concomitant]
     Indication: THYROID DISORDER
  5. ORLISTAT [Concomitant]
     Indication: WEIGHT CONTROL

REACTIONS (3)
  - DRUG INEFFECTIVE [None]
  - ERECTILE DYSFUNCTION [None]
  - WEIGHT LOSS POOR [None]
